FAERS Safety Report 6009333-9 (Version None)
Quarter: 2008Q4

REPORT INFORMATION
  Report Type: 
  Country: None (occurrence: None)
  Receive Date: 20081217
  Receipt Date: 20081013
  Transmission Date: 20090506
  Serious: Yes (Other)
  Sender: FDA-Public Use
  Company Number: US-BAYER-200822122NA

PATIENT
  Age: 39 Year
  Sex: Female
  Weight: 88 kg

DRUGS (2)
  1. YAZ [Suspect]
     Indication: CONTRACEPTION
     Route: 048
     Dates: start: 20071220, end: 20080326
  2. TEA, GREEN [Interacting]

REACTIONS (1)
  - PULMONARY EMBOLISM [None]
